FAERS Safety Report 23377768 (Version 1)
Quarter: 2024Q1

REPORT INFORMATION
  Report Type: Spontaneous
  Country: US (occurrence: US)
  Receive Date: 20240108
  Receipt Date: 20240108
  Transmission Date: 20240410
  Serious: No
  Sender: FDA-Public Use
  Company Number: US-AGEPHA PHARMA FZ LLC-AGP202311-000005

PATIENT
  Age: 76 Year
  Sex: Male

DRUGS (1)
  1. LODOCO [Suspect]
     Active Substance: COLCHICINE
     Indication: Product used for unknown indication
     Dosage: 1 TABLET, DAILY
     Route: 048
     Dates: start: 20231016

REACTIONS (1)
  - Gastrointestinal disorder [Unknown]
